FAERS Safety Report 18787440 (Version 1)
Quarter: 2021Q1

REPORT INFORMATION
  Report Type: Spontaneous
  Country: US (occurrence: US)
  Receive Date: 20210125
  Receipt Date: 20210125
  Transmission Date: 20210419
  Serious: No
  Sender: FDA-Public Use
  Company Number: US-ROCHE-2669307

PATIENT
  Sex: Female
  Weight: 95.34 kg

DRUGS (1)
  1. RITUXAN [Suspect]
     Active Substance: RITUXIMAB
     Indication: HAEMOLYTIC ANAEMIA
     Route: 042
     Dates: start: 202007

REACTIONS (4)
  - Joint swelling [Unknown]
  - Intentional product use issue [Unknown]
  - Peripheral swelling [Unknown]
  - Off label use [Unknown]
